FAERS Safety Report 5632354-2 (Version None)
Quarter: 2008Q1

REPORT INFORMATION
  Report Type: 
  Country: None (occurrence: None)
  Receive Date: 20080220
  Receipt Date: 20080208
  Transmission Date: 20080703
  Serious: Yes (Other)
  Sender: FDA-Public Use
  Company Number: AU-ELI_LILLY_AND_COMPANY-AU200802001573

PATIENT
  Age: 20 Year
  Sex: Male
  Weight: 63 kg

DRUGS (5)
  1. STRATTERA [Suspect]
     Indication: ATTENTION DEFICIT/HYPERACTIVITY DISORDER
     Dosage: 60 MG, DAILY (1/D)
     Route: 048
     Dates: start: 20060101, end: 20070101
  2. STRATTERA [Suspect]
     Dosage: 120 MG, DAILY (1/D)
     Route: 048
     Dates: start: 20070101, end: 20070101
  3. STRATTERA [Suspect]
     Dosage: 60 MG, DAILY (1/D)
     Route: 048
     Dates: start: 20070101, end: 20080101
  4. STRATTERA [Suspect]
     Dosage: 85 MG, UNKNOWN
     Route: 048
     Dates: start: 20080201
  5. TERBINAFINE HCL [Concomitant]
     Indication: ONYCHOMYCOSIS
     Dosage: 250 MG, DAILY (1/D)
     Route: 048
     Dates: start: 20080202

REACTIONS (9)
  - AGITATION [None]
  - ANGER [None]
  - DEPRESSED MOOD [None]
  - INTENTIONAL OVERDOSE [None]
  - INTENTIONAL SELF-INJURY [None]
  - MAJOR DEPRESSION [None]
  - MENTAL DISORDER [None]
  - PSYCHOTIC DISORDER [None]
  - SUICIDAL IDEATION [None]
